FAERS Safety Report 5798810-1 (Version None)
Quarter: 2008Q3

REPORT INFORMATION
  Report Type: 
  Country: None (occurrence: None)
  Receive Date: 20080702
  Receipt Date: 20080627
  Transmission Date: 20090109
  Serious: Yes (Death, Other)
  Sender: FDA-Public Use
  Company Number: US-ABBOTT-08P-163-0459876-00

PATIENT
  Sex: Male
  Weight: 130.3 kg

DRUGS (2)
  1. HUMIRA [Suspect]
     Indication: RHEUMATOID ARTHRITIS
     Route: 058
     Dates: start: 20060101, end: 20080601
  2. INSULIN [Concomitant]
     Indication: DIABETES MELLITUS
     Route: 050
     Dates: end: 20080601

REACTIONS (4)
  - GALLBLADDER DISORDER [None]
  - PANCREATITIS [None]
  - RENAL FAILURE [None]
  - RESPIRATORY DISORDER [None]
